FAERS Safety Report 20873479 (Version 2)
Quarter: 2022Q3

REPORT INFORMATION
  Report Type: Report from Study
  Country: EG (occurrence: EG)
  Receive Date: 20220525
  Receipt Date: 20220711
  Transmission Date: 20221026
  Serious: Yes (Other)
  Sender: FDA-Public Use
  Company Number: EG-NOVARTISPH-NVSC2022EG120390

PATIENT
  Age: 21 Year
  Sex: Male

DRUGS (3)
  1. GILENYA [Suspect]
     Active Substance: FINGOLIMOD HYDROCHLORIDE
     Indication: Multiple sclerosis
     Dosage: 1 DOSAGE FORM, QD
     Route: 048
     Dates: start: 20210130
  2. TEGRETOL [Concomitant]
     Active Substance: CARBAMAZEPINE
     Indication: Balance disorder
     Dosage: 1.5 DOSAGE FORM, QD, (1 TAB IN THE MORNING AND HALF TAB AT NIGHT)
     Route: 065
  3. TEGRETOL [Concomitant]
     Active Substance: CARBAMAZEPINE
     Dosage: 0.5 MG, BID, (WHILE USING GILENYA 0.5 MG : HALF TAB IN MORNING AND HALF TAB AT NIGHT)
     Route: 048

REACTIONS (5)
  - Facial paralysis [Recovered/Resolved]
  - Muscle spasms [Recovered/Resolved]
  - Nervousness [Recovered/Resolved]
  - Chills [Recovered/Resolved]
  - Hepatic enzyme increased [Unknown]

NARRATIVE: CASE EVENT DATE: 20220101
